FAERS Safety Report 21776423 (Version 1)
Quarter: 2022Q4

REPORT INFORMATION
  Report Type: Other
  Country: FR (occurrence: None)
  Receive Date: 20221226
  Receipt Date: 20221226
  Transmission Date: 20230113
  Serious: Yes (Death)
  Sender: FDA-Public Use
  Company Number: FR-Encube-000250

PATIENT
  Age: 29 Year
  Sex: Male

DRUGS (13)
  1. TESTOSTERONE [Suspect]
     Active Substance: TESTOSTERONE
     Indication: Product used for unknown indication
  2. TESTOSTERONE PROPIONATE [Suspect]
     Active Substance: TESTOSTERONE PROPIONATE
     Indication: Product used for unknown indication
  3. TESTOSTERONE ISOCAPROATE [Suspect]
     Active Substance: TESTOSTERONE ISOCAPROATE
     Indication: Product used for unknown indication
  4. TESTOSTERONE DECANOATE [Suspect]
     Active Substance: TESTOSTERONE DECANOATE
     Indication: Product used for unknown indication
  5. TESTOSTERONE CYPIONATE [Suspect]
     Active Substance: TESTOSTERONE CYPIONATE
     Indication: Product used for unknown indication
  6. NANDROLONE DECANOATE [Suspect]
     Active Substance: NANDROLONE DECANOATE
     Indication: Product used for unknown indication
  7. STANOZOLOL [Suspect]
     Active Substance: STANOZOLOL
     Indication: Product used for unknown indication
  8. TRENBOLONE [Suspect]
     Active Substance: TRENBOLONE
     Indication: Product used for unknown indication
  9. TRENBOLONE ACETATE [Suspect]
     Active Substance: TRENBOLONE ACETATE
     Indication: Product used for unknown indication
     Dosage: 100 MG/ML
  10. DROMOSTANOLONE PROPIONATE [Suspect]
     Active Substance: DROMOSTANOLONE PROPIONATE
     Indication: Product used for unknown indication
  11. OXANDROLONE [Suspect]
     Active Substance: OXANDROLONE
     Indication: Product used for unknown indication
  12. DROMOSTANOLONE [Suspect]
     Active Substance: DROMOSTANOLONE
     Indication: Product used for unknown indication
  13. NANDROLONE [Suspect]
     Active Substance: NANDROLONE
     Indication: Product used for unknown indication

REACTIONS (3)
  - Sudden cardiac death [Fatal]
  - Drug abuse [Fatal]
  - Toxicity to various agents [Fatal]
